FAERS Safety Report 6224774-2 (Version None)
Quarter: 2009Q2

REPORT INFORMATION
  Report Type: 
  Country: None (occurrence: None)
  Receive Date: 20090612
  Receipt Date: 20090325
  Transmission Date: 20091009
  Serious: No
  Sender: FDA-Public Use
  Company Number: US-ABBOTT-09P-163-0565254-00

PATIENT
  Sex: Female

DRUGS (3)
  1. HUMIRA [Suspect]
     Indication: CROHN'S DISEASE
     Route: 058
     Dates: start: 20080102
  2. THYROID MEDICATION [Concomitant]
     Indication: DRUG USE FOR UNKNOWN INDICATION
  3. VITAMIN TAB [Concomitant]
     Indication: PREGNANCY

REACTIONS (5)
  - ABDOMINAL PAIN LOWER [None]
  - CROHN'S DISEASE [None]
  - DRUG INEFFECTIVE [None]
  - FREQUENT BOWEL MOVEMENTS [None]
  - RECTAL HAEMORRHAGE [None]
